FAERS Safety Report 17251395 (Version 1)
Quarter: 2019Q4

REPORT INFORMATION
  Report Type: Spontaneous
  Country: US (occurrence: US)
  Receive Date: 20191213
  Receipt Date: 20191213
  Transmission Date: 20200122
  Serious: Yes (Hospitalization)
  Sender: FDA-Public Use
  Company Number: None

PATIENT
  Age: 75 Year
  Sex: Male
  Weight: 71 kg

DRUGS (1)
  1. ONABOTUL INUMTOXINA (ONABOTULINUMTOXINA 100 UNIT/VIL INJ) [Suspect]
     Active Substance: ONABOTULINUMTOXINA
     Indication: SALIVARY HYPERSECRETION
     Dates: start: 20190806, end: 20190806

REACTIONS (2)
  - Dysphagia [None]
  - Salivary hypersecretion [None]

NARRATIVE: CASE EVENT DATE: 20190813
